FAERS Safety Report 4436799-8 (Version None)
Quarter: 2004Q3

REPORT INFORMATION
  Report Type: 
  Country: None (occurrence: None)
  Receive Date: 20040830
  Receipt Date: 20040416
  Transmission Date: 20050211
  Serious: Yes (Life-Threatening, Hospitalization, Disabling, Other)
  Sender: FDA-Public Use
  Company Number: 200413026US

PATIENT
  Sex: Male
  Weight: 128.38 kg

DRUGS (20)
  1. INSULIN GLARGINE [Suspect]
     Indication: DIABETES MELLITUS NON-INSULIN-DEPENDENT
     Dosage: DOSE UNIT: UNITS
     Route: 058
     Dates: start: 20030905, end: 20040401
  2. NOVOLOG [Suspect]
  3. AVANDIA [Concomitant]
     Indication: DIABETES MELLITUS
     Dosage: DOSE: UNK
     Route: 048
  4. GLUCOPHAGE [Concomitant]
     Indication: DIABETES MELLITUS
     Route: 048
  5. GLIPIZIDE [Concomitant]
     Indication: DIABETES MELLITUS
     Route: 048
  6. PRINIVIL [Concomitant]
     Indication: HYPERTENSION
     Route: 048
  7. NEURONTIN [Concomitant]
     Route: 048
  8. ZOCOR [Concomitant]
     Indication: HYPERLIPIDAEMIA
     Route: 048
  9. PAXIL [Concomitant]
     Indication: DEPRESSION
     Route: 048
  10. CARDIZEM CD [Concomitant]
     Route: 048
  11. PLAVIX [Concomitant]
     Route: 048
  12. LOPRESSOR [Concomitant]
     Route: 048
  13. PROTONIX [Concomitant]
     Route: 048
  14. NOVOLOG [Concomitant]
     Dosage: DOSE UNIT: UNITS
     Route: 058
  15. TOPROL-XL [Concomitant]
  16. PLAVIX [Concomitant]
  17. PAXIL [Concomitant]
  18. LASIX [Concomitant]
     Route: 048
  19. ALDACTONE [Concomitant]
  20. ASPIRIN [Concomitant]

REACTIONS (2)
  - HYPOGLYCAEMIA [None]
  - INCOHERENT [None]
